FAERS Safety Report 8807773 (Version 1)
Quarter: 2012Q4

REPORT INFORMATION
  Report Type: 
  Country: US (occurrence: US)
  Receive Date: 20120925
  Receipt Date: 20120925
  Transmission Date: 20130627
  Serious: Yes (Hospitalization)
  Sender: FDA-Public Use
  Company Number: US-B.I. PHARMACEUTICALS,INC./RIDGEFIELD-2012-BP-23120BP

PATIENT
  Age: 80 Year
  Sex: Male
  Weight: 92 kg

DRUGS (11)
  1. SPIRIVA [Suspect]
     Indication: CHRONIC OBSTRUCTIVE PULMONARY DISEASE
     Dosage: 18 mcg
     Route: 055
     Dates: start: 20120801
  2. SPIRIVA [Suspect]
     Dosage: 18 mcg
     Route: 048
     Dates: start: 20120920, end: 20120920
  3. ZOLPIDEM [Concomitant]
     Indication: SLEEP DISORDER
     Route: 048
     Dates: start: 20120918
  4. OXYCODONE [Concomitant]
     Indication: PAIN
     Route: 048
     Dates: start: 20120825
  5. COLORITE [Concomitant]
     Indication: LAXATIVE SUPPORTIVE CARE
     Route: 048
     Dates: start: 20120824
  6. MECLIZINE [Concomitant]
     Indication: DIZZINESS
     Route: 048
     Dates: start: 2002
  7. METOPROLOL [Concomitant]
     Indication: HYPERTENSION
     Dosage: 25 mg
     Route: 048
  8. SENNA [Concomitant]
     Indication: FAECES HARD
     Dosage: 17.2 mg
     Route: 048
     Dates: start: 20120824
  9. PRO AIR [Concomitant]
     Indication: LUNG DISORDER
     Dosage: 4 puf
     Route: 055
     Dates: start: 20120801
  10. FLUTICASONE [Concomitant]
     Indication: DYSPNOEA
     Route: 045
     Dates: start: 20120801
  11. CRESTOR [Concomitant]
     Indication: BLOOD CHOLESTEROL INCREASED
     Dosage: 20 mg
     Route: 048

REACTIONS (2)
  - Lung carcinoma cell type unspecified stage III [Unknown]
  - Incorrect route of drug administration [Recovered/Resolved]
